FAERS Safety Report 10446817 (Version 2)
Quarter: 2014Q3

REPORT INFORMATION
  Report Type: Spontaneous
  Country: US (occurrence: US)
  Receive Date: 20140911
  Receipt Date: 20140911
  Transmission Date: 20150326
  Serious: Yes (Hospitalization)
  Sender: FDA-Public Use
  Company Number: US-JNJFOC-20140502311

PATIENT
  Age: 69 Year
  Sex: Male

DRUGS (23)
  1. VANCOMYCIN [Concomitant]
     Active Substance: VANCOMYCIN
  2. IMBRUVICA [Suspect]
     Active Substance: IBRUTINIB
     Indication: CHRONIC LYMPHOCYTIC LEUKAEMIA
     Route: 048
     Dates: start: 201403, end: 20140421
  3. IMMUNOGLOBULIN [Concomitant]
     Active Substance: HUMAN IMMUNOGLOBULIN G
     Indication: HYPOGAMMAGLOBULINAEMIA
     Route: 042
  4. PROTONIX [Concomitant]
     Active Substance: PANTOPRAZOLE SODIUM
  5. MORPHINE [Concomitant]
     Active Substance: MORPHINE
  6. FLOMAX [Concomitant]
     Active Substance: TAMSULOSIN HYDROCHLORIDE
     Route: 048
  7. HEPARIN [Concomitant]
     Active Substance: HEPARIN SODIUM
  8. BACTRIM [Concomitant]
     Active Substance: SULFAMETHOXAZOLE\TRIMETHOPRIM
  9. IMBRUVICA [Suspect]
     Active Substance: IBRUTINIB
     Indication: CHRONIC LYMPHOCYTIC LEUKAEMIA
     Route: 048
     Dates: start: 20140220, end: 201403
  10. IMBRUVICA [Suspect]
     Active Substance: IBRUTINIB
     Indication: B-CELL SMALL LYMPHOCYTIC LYMPHOMA
     Route: 048
     Dates: start: 201403, end: 20140421
  11. PENICILLIN [Concomitant]
     Active Substance: PENICILLIN
  12. ATENOLOL. [Concomitant]
     Active Substance: ATENOLOL
  13. LISINOPRIL. [Concomitant]
     Active Substance: LISINOPRIL
  14. NEXIUM [Concomitant]
     Active Substance: ESOMEPRAZOLE MAGNESIUM
     Route: 048
  15. CEFEPIME [Concomitant]
     Active Substance: CEFEPIME\CEFEPIME HYDROCHLORIDE
  16. IMBRUVICA [Suspect]
     Active Substance: IBRUTINIB
     Indication: B-CELL SMALL LYMPHOCYTIC LYMPHOMA
     Route: 048
     Dates: start: 20140220, end: 201403
  17. METHYLPREDNISOLONE [Suspect]
     Active Substance: METHYLPREDNISOLONE
     Indication: PRODUCT USED FOR UNKNOWN INDICATION
  18. ACYCLOVIR. [Concomitant]
     Active Substance: ACYCLOVIR
     Route: 048
  19. PERCOCET [Concomitant]
     Active Substance: ACETAMINOPHEN\OXYCODONE HYDROCHLORIDE
  20. XARELTO [Suspect]
     Active Substance: RIVAROXABAN
     Indication: PRODUCT USED FOR UNKNOWN INDICATION
     Route: 048
  21. ASPIRIN. [Concomitant]
     Active Substance: ASPIRIN
  22. MIRALAX [Concomitant]
     Active Substance: POLYETHYLENE GLYCOL 3350
  23. BENZONATATE. [Concomitant]
     Active Substance: BENZONATATE

REACTIONS (11)
  - Pain [Recovering/Resolving]
  - Swelling [Recovering/Resolving]
  - Bacteraemia [Unknown]
  - Arthralgia [Unknown]
  - Rash [Recovered/Resolved]
  - Decreased appetite [Unknown]
  - Fatigue [Unknown]
  - Deep vein thrombosis [Unknown]
  - Rectal haemorrhage [Recovered/Resolved]
  - Asthenia [Unknown]
  - Purpura [Recovering/Resolving]

NARRATIVE: CASE EVENT DATE: 201303
